FAERS Safety Report 10038582 (Version 1)
Quarter: 2014Q1

REPORT INFORMATION
  Report Type: Spontaneous
  Country: US (occurrence: None)
  Receive Date: 20140306
  Receipt Date: 20140306
  Transmission Date: 20141002
  Serious: Yes (Other)
  Sender: FDA-Public Use
  Company Number: 163-21880-13064519

PATIENT
  Age: 75 Year
  Sex: Male

DRUGS (7)
  1. REVLIMID [Suspect]
     Indication: MYELOFIBROSIS
     Route: 048
     Dates: start: 20130404, end: 20130520
  2. DIGOXIN (DIGOXIN) (UNKNOWN) [Concomitant]
  3. ASPIRIN (ACETYLSALICYLIC ACID) (UNKNOWN) [Concomitant]
  4. LIPITOR (ATORVASTATIN) [Concomitant]
  5. LASIX (FUROSEMIDE) (UNKNOWN) [Concomitant]
  6. COREG ICARVEDILOL) (UNKNOWN) [Concomitant]
  7. COZAAR (LOSARTAN POTASSIUM) (UNKNOWN) [Concomitant]

REACTIONS (3)
  - Neutropenia [None]
  - Anaemia [None]
  - Platelet count decreased [None]
